FAERS Safety Report 19388364 (Version 1)
Quarter: 2021Q2

REPORT INFORMATION
  Report Type: Spontaneous
  Country: US (occurrence: US)
  Receive Date: 20210608
  Receipt Date: 20210608
  Transmission Date: 20210717
  Serious: Yes (Other)
  Sender: FDA-Public Use
  Company Number: US-GLAXOSMITHKLINE-US2021GSK123086

PATIENT
  Sex: Female

DRUGS (2)
  1. ZANTAC [Suspect]
     Active Substance: RANITIDINE HYDROCHLORIDE
     Dosage: UNK UNK, QD
     Route: 065
     Dates: start: 198501, end: 199801
  2. ZANTAC [Suspect]
     Active Substance: RANITIDINE HYDROCHLORIDE
     Dosage: UNK UNK, QD
     Route: 065
     Dates: start: 198501, end: 199801

REACTIONS (1)
  - Breast cancer [Unknown]
